FAERS Safety Report 6174904-6 (Version None)
Quarter: 2009Q2

REPORT INFORMATION
  Report Type: 
  Country: None (occurrence: None)
  Receive Date: 20090430
  Receipt Date: 20081002
  Transmission Date: 20091009
  Serious: No
  Sender: FDA-Public Use
  Company Number: US-ASTRAZENECA-2008UW21503

PATIENT
  Age: 81 Year
  Sex: Female
  Weight: 44.9 kg

DRUGS (2)
  1. NEXIUM [Suspect]
     Indication: PAIN
     Route: 048
  2. BENICAR [Concomitant]

REACTIONS (1)
  - PALPITATIONS [None]
